FAERS Safety Report 18632748 (Version 2)
Quarter: 2021Q2

REPORT INFORMATION
  Report Type: Other
  Country: US (occurrence: US)
  Receive Date: 20201218
  Receipt Date: 20210524
  Transmission Date: 20210717
  Serious: Yes (Hospitalization)
  Sender: FDA-Public Use
  Company Number: US-ROCHE-2729586

PATIENT
  Age: 82 Year
  Sex: Male
  Weight: 90.8 kg

DRUGS (5)
  1. DOXAZOSIN [Concomitant]
     Active Substance: DOXAZOSIN MESYLATE
     Indication: BENIGN PROSTATIC HYPERPLASIA
     Dosage: STARTED 10 OR MORE YEARS AGO
     Route: 048
  2. DOXAZOSIN [Concomitant]
     Active Substance: DOXAZOSIN MESYLATE
     Indication: HYPERTENSION
  3. OCREVUS [Suspect]
     Active Substance: OCRELIZUMAB
     Indication: PRIMARY PROGRESSIVE MULTIPLE SCLEROSIS
     Dosage: STARTED A COUPLE YEARS, HAS HAD 3 TO 4 DOSES ;ONGOING: YES
     Route: 042
  4. FINASTERIDE. [Concomitant]
     Active Substance: FINASTERIDE
     Indication: BENIGN PROSTATIC HYPERPLASIA
     Dosage: STARTED ABOUT 10 OR MORE YEARS AGO
     Route: 048
  5. OCREVUS [Suspect]
     Active Substance: OCRELIZUMAB
     Dosage: DATE OF TREATMENT: 08/DEC/2017, 26/APR/2018, 26/OCT/2018, 26/APR/2019, 29/OCT/2019, 30/APR/2020, 30/
     Route: 065
     Dates: start: 20171124

REACTIONS (2)
  - Urinary tract infection [Unknown]
  - Asthenia [Not Recovered/Not Resolved]

NARRATIVE: CASE EVENT DATE: 2020
